FAERS Safety Report 4751987-9 (Version None)
Quarter: 2005Q3

REPORT INFORMATION
  Report Type: 
  Country: None (occurrence: None)
  Receive Date: 20050824
  Receipt Date: 20050311
  Transmission Date: 20060218
  Serious: Yes (Life-Threatening, Hospitalization, Disabling)
  Sender: FDA-Public Use
  Company Number: US-MERCK-0503USA01798

PATIENT
  Age: 74 Year
  Sex: Male

DRUGS (4)
  1. VIOXX [Suspect]
     Indication: ARTHRITIS
     Route: 048
     Dates: start: 20010101, end: 20040901
  2. VIOXX [Suspect]
     Route: 048
     Dates: start: 20010101, end: 20040901
  3. [THERAPY UNSPECIFIED] [Concomitant]
     Route: 065
  4. ZOCOR [Concomitant]
     Route: 065

REACTIONS (3)
  - CEREBRAL THROMBOSIS [None]
  - EMBOLISM [None]
  - FALL [None]
